FAERS Safety Report 16574724 (Version 1)
Quarter: 2019Q3

REPORT INFORMATION
  Report Type: Spontaneous
  Country: DE (occurrence: DE)
  Receive Date: 20190715
  Receipt Date: 20190715
  Transmission Date: 20191004
  Serious: Yes (Hospitalization)
  Sender: FDA-Public Use
  Company Number: DE-BAUSCH-BL-2019-019731

PATIENT
  Age: 52 Year
  Sex: Female

DRUGS (1)
  1. DICLOFENAC [Suspect]
     Active Substance: DICLOFENAC
     Indication: PRODUCT USED FOR UNKNOWN INDICATION
     Dosage: NK (NOT KNOWN) MG, IF NECESSARY; LAST ON 24/JAN/2018 IN THE MORNING
     Route: 065
     Dates: end: 20180124

REACTIONS (2)
  - Abdominal pain [Unknown]
  - Chest pain [Unknown]
